FAERS Safety Report 25471115 (Version 2)
Quarter: 2025Q3

REPORT INFORMATION
  Report Type: Spontaneous
  Country: CN (occurrence: CN)
  Receive Date: 20250624
  Receipt Date: 20250704
  Transmission Date: 20251021
  Serious: Yes (Death, Other)
  Sender: BAXTER
  Company Number: CN-BAXTER-2025BAX017001

PATIENT
  Age: 58 Year
  Sex: Female

DRUGS (8)
  1. CYCLOPHOSPHAMIDE [Suspect]
     Active Substance: CYCLOPHOSPHAMIDE
     Indication: Systemic lupus erythematosus
     Route: 065
  2. CYCLOPHOSPHAMIDE [Suspect]
     Active Substance: CYCLOPHOSPHAMIDE
     Dosage: 0.8 G, EVERY 4 WK (IVGTT, USED THREE TIMES IN TOTAL, ONCE A MONTH)
     Route: 042
  3. METHYLPREDNISOLONE [Suspect]
     Active Substance: METHYLPREDNISOLONE
     Indication: Systemic lupus erythematosus
     Dosage: 40 MG, QD
     Route: 048
  4. METHYLPREDNISOLONE [Suspect]
     Active Substance: METHYLPREDNISOLONE
     Indication: Immunosuppression
     Dosage: 20 MG, QD
     Route: 048
  5. METHYLPREDNISOLONE [Suspect]
     Active Substance: METHYLPREDNISOLONE
     Dosage: 12 MG, QD
     Route: 065
  6. FLUCONAZOLE [Concomitant]
     Active Substance: FLUCONAZOLE
     Indication: Leukoplakia
     Dosage: 400 MG, QD
     Route: 042
  7. PIPERACILLIN AND TAZOBACTAM [Concomitant]
     Active Substance: PIPERACILLIN SODIUM\TAZOBACTAM SODIUM
     Indication: Antibiotic therapy
     Dosage: 4.5 MG, TID (EVERY 8 HOURS)
     Route: 042
  8. HYDROXYCHLOROQUINE [Concomitant]
     Active Substance: HYDROXYCHLOROQUINE
     Indication: Immunomodulatory therapy
     Route: 065

REACTIONS (18)
  - Nocardiosis [Not Recovered/Not Resolved]
  - Disseminated nocardiosis [Fatal]
  - Headache [Fatal]
  - Dizziness [Fatal]
  - Central nervous system lesion [Fatal]
  - Disseminated nocardiosis [Fatal]
  - Chest pain [Fatal]
  - Back pain [Fatal]
  - Troponin I increased [Fatal]
  - Myoglobin blood increased [Fatal]
  - Blood creatine phosphokinase increased [Fatal]
  - Brain natriuretic peptide increased [Fatal]
  - Condition aggravated [Not Recovered/Not Resolved]
  - Burkholderia pseudomallei infection [Not Recovered/Not Resolved]
  - Loss of consciousness [Not Recovered/Not Resolved]
  - Cardiac arrest [Not Recovered/Not Resolved]
  - Mydriasis [Not Recovered/Not Resolved]
  - Confusional state [Not Recovered/Not Resolved]
